FAERS Safety Report 5082248-9 (Version None)
Quarter: 2006Q3

REPORT INFORMATION
  Report Type: 
  Country: None (occurrence: None)
  Receive Date: 20060815
  Receipt Date: 20060815
  Transmission Date: 20061208
  Serious: Yes (Life-Threatening, Hospitalization, Other)
  Sender: FDA-Public Use
  Company Number: None

PATIENT
  Age: 51 Year
  Sex: Female
  Weight: 90.7194 kg

DRUGS (1)
  1. ALLOPURINOL 100MG TAB [Suspect]
     Indication: GOUT
     Dosage: 1 DAILY IN THE MORNING 1 PO
     Route: 048
     Dates: start: 20050908, end: 20050926

REACTIONS (12)
  - CHEILITIS [None]
  - EMOTIONAL DISORDER [None]
  - MOUTH INJURY [None]
  - OCULAR HYPERAEMIA [None]
  - OEDEMA PERIPHERAL [None]
  - PAIN [None]
  - SKIN DISORDER [None]
  - SOCIAL AVOIDANT BEHAVIOUR [None]
  - SWELLING FACE [None]
  - SWOLLEN TONGUE [None]
  - THERMAL BURN [None]
  - URTICARIA [None]
